FAERS Safety Report 26165248 (Version 2)
Quarter: 2025Q4

REPORT INFORMATION
  Report Type: Spontaneous
  Country: US (occurrence: US)
  Receive Date: 20251216
  Receipt Date: 20251216
  Transmission Date: 20260118
  Serious: No
  Sender: SANDOZ
  Company Number: US-SANDOZ-SDZ2025US094870

PATIENT
  Sex: Female

DRUGS (1)
  1. ALBUTEROL SULFATE [Suspect]
     Active Substance: ALBUTEROL SULFATE
     Indication: Product used for unknown indication
     Dosage: 90 MCG  USED IT TWICE 6 HOURS APART
     Route: 065
     Dates: start: 20251213

REACTIONS (3)
  - Illness [Unknown]
  - Drug delivery system issue [Unknown]
  - Device malfunction [Unknown]
